FAERS Safety Report 21079998 (Version 1)
Quarter: 2022Q3

REPORT INFORMATION
  Report Type: Report from Study
  Country: US (occurrence: None)
  Receive Date: 20220714
  Receipt Date: 20220714
  Transmission Date: 20221026
  Serious: Yes (Hospitalization)
  Sender: FDA-Public Use
  Company Number: 2022A247769

PATIENT
  Sex: Male

DRUGS (2)
  1. BRILINTA [Interacting]
     Active Substance: TICAGRELOR
     Route: 048
  2. LISINOPRIL [Interacting]
     Active Substance: LISINOPRIL
     Route: 048

REACTIONS (2)
  - Drug interaction [Recovered/Resolved]
  - Hypersensitivity [Recovered/Resolved]
